FAERS Safety Report 20515266 (Version 1)
Quarter: 2022Q1

REPORT INFORMATION
  Report Type: Spontaneous
  Country: PT (occurrence: PT)
  Receive Date: 20220224
  Receipt Date: 20220224
  Transmission Date: 20220423
  Serious: Yes (Other)
  Sender: FDA-Public Use
  Company Number: None

PATIENT
  Age: 67 Year
  Sex: Male
  Weight: 61 kg

DRUGS (13)
  1. VELTASSA [Suspect]
     Active Substance: PATIROMER
     Indication: Hyperkalaemia
     Route: 048
     Dates: start: 20211213, end: 20220128
  2. EMPAGLIFLOZIN [Concomitant]
     Active Substance: EMPAGLIFLOZIN
     Dosage: 25 MG: 1 COMPRIMIDO AO PEQUENO-ALMOCO
  3. BACLOFEN [Concomitant]
     Active Substance: BACLOFEN
     Indication: Alcohol abuse
  4. SENE [Concomitant]
     Dosage: 1 CP AO PEQUENO COM O OBJECTIVO DE 1 DEJECAO POR DIA
  5. FUROSEMIDE [Concomitant]
     Active Substance: FUROSEMIDE
     Dosage: 40 MG: 1 COMPRIMIDO DE MANHA
  6. SIMVASTATIN [Concomitant]
     Active Substance: SIMVASTATIN
     Dosage: 20 MG: 1 COMPRIMIDO AO JANTAR
  7. BISOPROLOL [Concomitant]
     Active Substance: BISOPROLOL
     Dosage: 10 MG AO PEQUENO ALMOCO
  8. ALENDRONIC ACID [Concomitant]
     Active Substance: ALENDRONIC ACID
     Dosage: 70 MG : 1 X SEMANA (4  FEIRA) EM JEJUM
  9. RAMIPRIL [Concomitant]
     Active Substance: RAMIPRIL
     Dosage: 10 MG: 1CP AO PEQUENO-ALMOCO
  10. NEUROBION [Concomitant]
     Active Substance: CYANOCOBALAMIN\PYRIDOXINE\THIAMINE
     Dosage: 1CP AO LANCHE
  11. INSULINA GLARGINA [Concomitant]
     Dosage: 10 U DE MANHA
  12. DIGOXIN [Concomitant]
     Active Substance: DIGOXIN
     Dosage: 0.125 MG: 1 COMPRIMIDO AO PEQUENO-ALMOCO AS 2 S, 4 S E 6 S
  13. EDOXABANO [Concomitant]
     Dosage: 60 MG: 1 CP AO PEQUENO-ALMOCO

REACTIONS (1)
  - Metabolic acidosis [Unknown]

NARRATIVE: CASE EVENT DATE: 20220124
